FAERS Safety Report 9342397 (Version 1)
Quarter: 2013Q2

REPORT INFORMATION
  Report Type: Spontaneous
  Country: AU (occurrence: None)
  Receive Date: 20130607
  Receipt Date: 20130607
  Transmission Date: 20140414
  Serious: Yes (Hospitalization)
  Sender: FDA-Public Use
  Company Number: IND1-AU-2013-0039

PATIENT
  Age: 32 Year
  Sex: Female
  Weight: 70 kg

DRUGS (3)
  1. INDOMETHACIN [Suspect]
     Route: 048
  2. BRODIFACOUM [Suspect]
     Route: 048
  3. COLCHICINE [Suspect]

REACTIONS (15)
  - Nausea [None]
  - Vomiting [None]
  - Diarrhoea [None]
  - Abdominal pain [None]
  - Intentional overdose [None]
  - Hypovolaemia [None]
  - Lactic acidosis [None]
  - Metabolic acidosis [None]
  - Enterocolitis [None]
  - Epistaxis [None]
  - Wound secretion [None]
  - Vaginal haemorrhage [None]
  - Thrombocytopenia [None]
  - Pancytopenia [None]
  - Alopecia [None]
